FAERS Safety Report 19863982 (Version 1)
Quarter: 2021Q3

REPORT INFORMATION
  Report Type: Spontaneous
  Country: ES (occurrence: ES)
  Receive Date: 20210922
  Receipt Date: 20210922
  Transmission Date: 20211014
  Serious: Yes (Other)
  Sender: FDA-Public Use
  Company Number: ES-AMGEN-ESPSP2021142198

PATIENT

DRUGS (2)
  1. MOZOBIL [Concomitant]
     Active Substance: PLERIXAFOR
     Indication: CONGENITAL APLASTIC ANAEMIA
     Dosage: (240 MICROGRAM/KG BODY WEIGHT/DAY; UP TO 4 DOSES)
     Route: 058
  2. NEUPOGEN [Suspect]
     Active Substance: FILGRASTIM
     Indication: HAEMATOPOIETIC STEM CELL MOBILISATION
     Dosage: 12 MICROGRAM/KG/12 H(TWICE DAILY) FOR UP TO 8 DAYS
     Route: 058

REACTIONS (15)
  - Application site pain [Unknown]
  - Tachycardia [Unknown]
  - Hypotension [Unknown]
  - Pleural effusion [Unknown]
  - Abdominal pain [Unknown]
  - Adverse drug reaction [Unknown]
  - Nausea [Unknown]
  - Headache [Unknown]
  - Vascular access site pain [Unknown]
  - Anaemia [Unknown]
  - Oropharyngeal pain [Unknown]
  - Vascular access site haemorrhage [Unknown]
  - Pruritus [Unknown]
  - Pyrexia [Unknown]
  - Vomiting [Unknown]
